FAERS Safety Report 7721612-3 (Version None)
Quarter: 2011Q3

REPORT INFORMATION
  Report Type: 
  Country: None (occurrence: None)
  Receive Date: 20110831
  Receipt Date: 20110824
  Transmission Date: 20111222
  Serious: Yes (Hospitalization, Other)
  Sender: FDA-Public Use
  Company Number: BR-MEDIMMUNE-MEDI-0013510

PATIENT
  Sex: Male
  Weight: 10.9 kg

DRUGS (2)
  1. UNSPECIPIED MEDICINE [Concomitant]
     Dates: start: 20100108
  2. SYNAGIS [Suspect]
     Indication: CARDIAC DISORDER
     Route: 030
     Dates: start: 20100424, end: 20100501

REACTIONS (3)
  - APNOEA [None]
  - CONGENITAL PULMONARY VALVE ATRESIA [None]
  - INFLUENZA [None]
